FAERS Safety Report 20727549 (Version 2)
Quarter: 2022Q3

REPORT INFORMATION
  Report Type: Spontaneous
  Country: US (occurrence: None)
  Receive Date: 20220419
  Receipt Date: 20220901
  Transmission Date: 20221027
  Serious: Yes (Hospitalization, Other)
  Sender: FDA-Public Use
  Company Number: US-ROCHE-2822650

PATIENT
  Age: 70 Year
  Sex: Male

DRUGS (12)
  1. AVASTIN [Suspect]
     Active Substance: BEVACIZUMAB
     Indication: Rectal cancer
     Route: 065
  2. LONSURF [Suspect]
     Active Substance: TIPIRACIL HYDROCHLORIDE\TRIFLURIDINE
     Indication: Rectal cancer
     Dosage: CURRENT CYCLE U, TWICE DAILY ORALLY FROM?17/MAR/2021 (CYCLE UNKNOWN) FOR MALIGNANT NEOPLASM OF RECTU
     Route: 048
     Dates: start: 20210315
  3. LONSURF [Suspect]
     Active Substance: TIPIRACIL HYDROCHLORIDE\TRIFLURIDINE
     Indication: Adenocarcinoma of colon
     Route: 048
     Dates: end: 20210504
  4. LONSURF [Suspect]
     Active Substance: TIPIRACIL HYDROCHLORIDE\TRIFLURIDINE
     Indication: Metastases to liver
  5. LONSURF [Suspect]
     Active Substance: TIPIRACIL HYDROCHLORIDE\TRIFLURIDINE
     Indication: Cholangiocarcinoma
  6. LONSURF [Suspect]
     Active Substance: TIPIRACIL HYDROCHLORIDE\TRIFLURIDINE
     Indication: Colon cancer
  7. STIVARGA [Suspect]
     Active Substance: REGORAFENIB
     Indication: Metastases to liver
     Route: 065
  8. ATIVAN [Concomitant]
     Active Substance: LORAZEPAM
  9. PRILOSEC [Concomitant]
     Active Substance: OMEPRAZOLE MAGNESIUM
  10. IRON [Concomitant]
     Active Substance: IRON
  11. CEPHALEXIN [Concomitant]
     Active Substance: CEPHALEXIN
  12. XARELTO [Concomitant]
     Active Substance: RIVAROXABAN

REACTIONS (29)
  - Dyspepsia [Unknown]
  - Vomiting [Unknown]
  - Nausea [Unknown]
  - Abdominal pain [Recovering/Resolving]
  - Headache [Unknown]
  - Inflammatory pain [Unknown]
  - Skin discolouration [Unknown]
  - Hyperaesthesia [Unknown]
  - Neuropathy peripheral [Unknown]
  - Oral pain [Unknown]
  - Constipation [Unknown]
  - Dermatitis [Unknown]
  - Dysphonia [Unknown]
  - Feeling abnormal [Unknown]
  - Malaise [Unknown]
  - Blood pressure increased [Unknown]
  - Diarrhoea [Unknown]
  - Gait inability [Unknown]
  - Erythema [Unknown]
  - Pain in extremity [Unknown]
  - Drug intolerance [Unknown]
  - Off label use [Unknown]
  - Tooth extraction [Unknown]
  - Metastases to liver [Unknown]
  - Drug ineffective [Unknown]
  - Skin ulcer [Unknown]
  - Haematochezia [Unknown]
  - Malignant neoplasm progression [Unknown]
  - Gait disturbance [Unknown]

NARRATIVE: CASE EVENT DATE: 20210604
